FAERS Safety Report 9174172 (Version 1)
Quarter: 2013Q1

REPORT INFORMATION
  Report Type: Spontaneous
  Country: SG (occurrence: SG)
  Receive Date: 20130320
  Receipt Date: 20130320
  Transmission Date: 20140127
  Serious: Yes (Hospitalization, Other)
  Sender: FDA-Public Use
  Company Number: PHHY2013SG025415

PATIENT
  Sex: 0

DRUGS (5)
  1. ACETYLSALICYLIC ACID [Suspect]
     Dosage: 100 MG, UNK
  2. PREDNISOLONE [Interacting]
     Dosage: 1-100 MG/DAY
  3. AMOXICILLIN [Concomitant]
  4. AMOXICILLIN + CLAVULANIC ACID [Concomitant]
  5. TRIMETHOPRIM SULFAMETHOXAZOLE [Concomitant]

REACTIONS (6)
  - Haemorrhoids [Recovered/Resolved]
  - Diarrhoea [Recovered/Resolved]
  - Drug interaction [Unknown]
  - Flatulence [Recovered/Resolved]
  - Nausea [Recovered/Resolved]
  - Abdominal distension [Recovered/Resolved]
